FAERS Safety Report 15136612 (Version 3)
Quarter: 2018Q3

REPORT INFORMATION
  Report Type: Spontaneous
  Country: US (occurrence: US)
  Receive Date: 20180712
  Receipt Date: 20180921
  Transmission Date: 20181010
  Serious: Yes (Death)
  Sender: FDA-Public Use
  Company Number: US-ACTELION-A-US2018-175081

PATIENT
  Age: 2 Year
  Sex: Female

DRUGS (1)
  1. TRACLEER [Suspect]
     Active Substance: BOSENTAN
     Indication: PULMONARY ARTERIAL HYPERTENSION
     Dosage: 8 MG, BID
     Route: 048
     Dates: start: 20180508

REACTIONS (1)
  - Death [Fatal]

NARRATIVE: CASE EVENT DATE: 20180701
